FAERS Safety Report 16135476 (Version 2)
Quarter: 2020Q3

REPORT INFORMATION
  Report Type: Spontaneous
  Country: FR (occurrence: FR)
  Receive Date: 20190329
  Receipt Date: 20200917
  Transmission Date: 20201102
  Serious: Yes (Death, Life-Threatening, Hospitalization)
  Sender: FDA-Public Use
  Company Number: FR-BAYER-FR-2006-011771

PATIENT
  Age: 26 Year
  Sex: Female
  Weight: 58 kg

DRUGS (10)
  1. ATARAX [Suspect]
     Active Substance: HYDROXYZINE HYDROCHLORIDE
     Dosage: UNK UNK, UNK
     Route: 048
     Dates: start: 20060112, end: 2006
  2. CANOL [HERBAL EXTRACT NOS] [Suspect]
     Active Substance: HERBALS
     Dosage: UNK
     Dates: start: 200510, end: 200511
  3. VIRLIX [Suspect]
     Active Substance: CETIRIZINE HYDROCHLORIDE
     Dosage: UNK
     Route: 048
     Dates: start: 20060118
  4. VIRLIX [Suspect]
     Active Substance: CETIRIZINE HYDROCHLORIDE
     Route: 048
  5. MIRENA [Suspect]
     Active Substance: LEVONORGESTREL
     Dosage: 20 ?G/DAY, CONT
     Route: 015
     Dates: start: 20050928, end: 20060225
  6. QUITADRILL [Suspect]
     Active Substance: MEQUITAZINE
     Route: 048
  7. QUITADRILL [Suspect]
     Active Substance: MEQUITAZINE
     Dosage: UNK
     Route: 048
     Dates: start: 20060103, end: 20060118
  8. MEQUITAZINE [Suspect]
     Active Substance: MEQUITAZINE
     Route: 048
  9. CANOL [HERBAL EXTRACT NOS] [Suspect]
     Active Substance: HERBALS
     Dosage: UNK
     Dates: start: 200501, end: 200505
  10. ZELITREX [Concomitant]
     Active Substance: VALACYCLOVIR HYDROCHLORIDE
     Dosage: UNK, UNK
     Dates: start: 20060201, end: 2006

REACTIONS (7)
  - Hepatic necrosis [Fatal]
  - Jaundice [Unknown]
  - Face oedema [Unknown]
  - Oedema peripheral [Unknown]
  - Pruritus [Fatal]
  - Musculoskeletal stiffness [Unknown]
  - Acne [Unknown]

NARRATIVE: CASE EVENT DATE: 20060103
